FAERS Safety Report 5942352-7 (Version None)
Quarter: 2008Q4

REPORT INFORMATION
  Report Type: 
  Country: None (occurrence: None)
  Receive Date: 20081105
  Receipt Date: 20081030
  Transmission Date: 20090506
  Serious: Yes (Hospitalization, Other)
  Sender: FDA-Public Use
  Company Number: GB-AMGEN-UK299631

PATIENT
  Sex: Female

DRUGS (3)
  1. ARANESP [Suspect]
     Indication: RENAL FAILURE CHRONIC
     Route: 065
  2. ARANESP [Suspect]
     Route: 065
     Dates: start: 20080711
  3. ARANESP [Suspect]
     Route: 065
     Dates: start: 20080101

REACTIONS (3)
  - FALL [None]
  - MEDICATION ERROR [None]
  - OVERDOSE [None]
